FAERS Safety Report 12965752 (Version 1)
Quarter: 2016Q4

REPORT INFORMATION
  Report Type: Spontaneous
  Country: NL (occurrence: NL)
  Receive Date: 20161122
  Receipt Date: 20161122
  Transmission Date: 20170207
  Serious: Yes (Death, Other)
  Sender: FDA-Public Use
  Company Number: NL-BAYER-2016-217823

PATIENT
  Age: 69 Year
  Sex: Male

DRUGS (2)
  1. XOFIGO [Suspect]
     Active Substance: RADIUM RA-223 DICHLORIDE
     Indication: DISEASE PROGRESSION
     Dosage: UNK
  2. XOFIGO [Suspect]
     Active Substance: RADIUM RA-223 DICHLORIDE
     Indication: BONE PAIN

REACTIONS (3)
  - Anaemia [None]
  - Thrombocytopenia [None]
  - Death [Fatal]

NARRATIVE: CASE EVENT DATE: 20141106
